FAERS Safety Report 11265901 (Version 1)
Quarter: 2015Q3

REPORT INFORMATION
  Report Type: Spontaneous
  Country: US (occurrence: US)
  Receive Date: 20150713
  Receipt Date: 20150713
  Transmission Date: 20151125
  Serious: Yes (Hospitalization, Other)
  Sender: FDA-Public Use
  Company Number: US-MPIJNJ-2012-08386

PATIENT
  Age: 61 Year
  Sex: Male
  Weight: 94.1 kg

DRUGS (1)
  1. VELCADE [Suspect]
     Active Substance: BORTEZOMIB
     Indication: PLASMA CELL MYELOMA
     Dosage: UNK
     Dates: start: 200709, end: 20071022

REACTIONS (6)
  - Diarrhoea [Unknown]
  - Syncope [Unknown]
  - Decreased appetite [Unknown]
  - Urine output decreased [Unknown]
  - Hypotension [Unknown]
  - Orthostatic hypotension [Recovered/Resolved]

NARRATIVE: CASE EVENT DATE: 20070928
